FAERS Safety Report 19901825 (Version 1)
Quarter: 2021Q3

REPORT INFORMATION
  Report Type: Spontaneous
  Country: US (occurrence: US)
  Receive Date: 20210930
  Receipt Date: 20210930
  Transmission Date: 20211014
  Serious: Yes (Hospitalization)
  Sender: FDA-Public Use
  Company Number: US-ROCHE-2923274

PATIENT
  Age: 12 Year
  Sex: Female
  Weight: 83 kg

DRUGS (3)
  1. REMDESIVIR. [Concomitant]
     Active Substance: REMDESIVIR
     Dates: start: 20210912, end: 20210913
  2. ACTEMRA [Suspect]
     Active Substance: TOCILIZUMAB
     Indication: COVID-19
     Route: 042
     Dates: start: 20210912, end: 20210912
  3. VORICONAZOLE. [Concomitant]
     Active Substance: VORICONAZOLE

REACTIONS (6)
  - Acute respiratory failure [Unknown]
  - Staphylococcus test positive [Unknown]
  - Acute respiratory distress syndrome [Unknown]
  - Aspergillus test positive [Unknown]
  - Off label use [Unknown]
  - Pneumothorax [Unknown]
